FAERS Safety Report 4949896-5 (Version None)
Quarter: 2006Q1

REPORT INFORMATION
  Report Type: 
  Country: None (occurrence: None)
  Receive Date: 20060314
  Receipt Date: 20060306
  Transmission Date: 20060701
  Serious: Yes (Death, Other)
  Sender: FDA-Public Use
  Company Number: 200610263BNE

PATIENT
  Age: 71 Year
  Sex: Female
  Weight: 50.5 kg

DRUGS (14)
  1. CIPROFLOXACIN [Suspect]
     Indication: CHRONIC OBSTRUCTIVE PULMONARY DISEASE
     Dosage: 250 MG, BID, ORAL
     Route: 048
     Dates: start: 20060118, end: 20060128
  2. METHOCARBAMOL [Concomitant]
  3. QUININE [Concomitant]
  4. ACETAMINOPHEN [Concomitant]
  5. AQUEOUS CREAM [Concomitant]
  6. COMBIVENT [Concomitant]
  7. MEVEVERINE [Concomitant]
  8. BECLOMETAHSONE [Concomitant]
  9. FOLIC ACID [Concomitant]
  10. HYDROXOCOBALAMIN [Concomitant]
  11. LANSOPRAZOLE [Concomitant]
  12. AMITRIPTYLINE [Concomitant]
  13. DEPO-MEDRONE [Concomitant]
  14. FORTISIP [Concomitant]

REACTIONS (2)
  - INCREASED TENDENCY TO BRUISE [None]
  - LEUKAEMIA PLASMACYTIC [None]
